FAERS Safety Report 16482329 (Version 2)
Quarter: 2019Q3

REPORT INFORMATION
  Report Type: Spontaneous
  Country: TH (occurrence: TH)
  Receive Date: 20190627
  Receipt Date: 20190703
  Transmission Date: 20191004
  Serious: Yes (Hospitalization)
  Sender: FDA-Public Use
  Company Number: TH-B.I. PHARMACEUTICALS,INC./RIDGEFIELD-2019-BI-027543

PATIENT
  Age: 63 Year
  Sex: Female
  Weight: 71.9 kg

DRUGS (8)
  1. PIOGLI [Concomitant]
     Dosage: UNIT DOSE/DAILY DOSE: 15
     Route: 065
     Dates: start: 20190424
  2. AMARYL [Concomitant]
     Active Substance: GLIMEPIRIDE
     Dosage: DOSE:2, DAILY DOSE:1
     Route: 065
     Dates: start: 20190424, end: 20190424
  3. JARDIANCE [Suspect]
     Active Substance: EMPAGLIFLOZIN
     Indication: TYPE 2 DIABETES MELLITUS
     Dosage: UNIT DOSE/DAILY DOSE:10
     Route: 065
     Dates: start: 20181206, end: 20190423
  4. LINAGLIPTIN [Concomitant]
     Active Substance: LINAGLIPTIN
     Indication: TYPE 2 DIABETES MELLITUS
     Dosage: DOSE:5
     Route: 065
     Dates: start: 20181206, end: 20190424
  5. AMARYL [Concomitant]
     Active Substance: GLIMEPIRIDE
     Indication: TYPE 2 DIABETES MELLITUS
     Dosage: DOSE:2, DAILY DOSE:1
     Route: 065
     Dates: start: 20190124, end: 20190423
  6. JARDIANCE [Suspect]
     Active Substance: EMPAGLIFLOZIN
     Dosage: UNIT DOSE/DAILY DOSE:10
     Route: 065
     Dates: start: 20190424, end: 20190427
  7. PIOGLI [Concomitant]
     Indication: TYPE 2 DIABETES MELLITUS
     Dosage: DOSE: 15?DAILY DOSE: 7.5
     Route: 065
     Dates: start: 20181227, end: 20190423
  8. LINAGLIPTIN [Concomitant]
     Active Substance: LINAGLIPTIN
     Dosage: DOSE:5
     Route: 065
     Dates: start: 20190424

REACTIONS (6)
  - Hysterectomy [Recovered/Resolved]
  - Euglycaemic diabetic ketoacidosis [Recovered/Resolved]
  - Somnolence [Unknown]
  - Dizziness [Unknown]
  - Nausea [Unknown]
  - Vomiting [Unknown]

NARRATIVE: CASE EVENT DATE: 20190424
